FAERS Safety Report 8719477 (Version 2)
Quarter: 2012Q4

REPORT INFORMATION
  Report Type: 
  Country: US (occurrence: US)
  Receive Date: 20120813
  Receipt Date: 20121004
  Transmission Date: 20130627
  Serious: Yes (Hospitalization)
  Sender: FDA-Public Use
  Company Number: US-ELI_LILLY_AND_COMPANY-US201208000965

PATIENT
  Age: 85 Year
  Sex: Female
  Weight: 64.4 kg

DRUGS (14)
  1. CYMBALTA [Suspect]
     Indication: DEPRESSION
     Dosage: 30 mg, qd
     Route: 048
     Dates: start: 20120704
  2. LEVOTHYROXINE [Concomitant]
  3. PRILOSEC [Concomitant]
  4. COUMADIN [Concomitant]
  5. PROCARDIA                          /00340701/ [Concomitant]
     Indication: BLOOD PRESSURE
  6. METOPROLOL [Concomitant]
  7. STOOL SOFTENER [Concomitant]
  8. ACETAMINOPHEN [Concomitant]
  9. MIRALAX [Concomitant]
  10. MELATONIN [Concomitant]
  11. VITAMIN D [Concomitant]
  12. CALCIUM [Concomitant]
  13. MAGNESIUM [Concomitant]
  14. MULTIVITAMIN [Concomitant]

REACTIONS (1)
  - Pulmonary embolism [Recovering/Resolving]
